FAERS Safety Report 17422443 (Version 1)
Quarter: 2020Q1

REPORT INFORMATION
  Report Type: Spontaneous
  Country: US (occurrence: US)
  Receive Date: 20200215
  Receipt Date: 20200215
  Transmission Date: 20200409
  Serious: Yes (Hospitalization, Other)
  Sender: FDA-Public Use
  Company Number: US-GLENMARK PHARMACEUTICALS-2020GMK046037

PATIENT
  Age: 72 Year
  Sex: Female

DRUGS (2)
  1. VERAPAMIL [Suspect]
     Active Substance: VERAPAMIL HYDROCHLORIDE
     Dosage: UNK (THE VERAPAMIL DOSE STARTED AT 40 MG IN THE FLUSHING BAG. BASED ON THE ANGIOGRAPHIC RESPONSE)
     Route: 013
  2. VERAPAMIL [Suspect]
     Active Substance: VERAPAMIL HYDROCHLORIDE
     Indication: PRODUCT USED FOR UNKNOWN INDICATION
     Dosage: 40 MG, UNK (THE VERAPAMIL DOSE STARTED AT 40 MG IN THE FLUSHING BAG. BASED ON THE ANGIOGRAPHIC RESP)
     Route: 013

REACTIONS (3)
  - Hypotension [Unknown]
  - Pulmonary oedema [Unknown]
  - Hypoxia [Unknown]
